FAERS Safety Report 23821603 (Version 1)
Quarter: 2024Q2

REPORT INFORMATION
  Report Type: Spontaneous
  Country: DE (occurrence: DE)
  Receive Date: 20240506
  Receipt Date: 20240506
  Transmission Date: 20240715
  Serious: Yes (Hospitalization, Other)
  Sender: FDA-Public Use
  Company Number: DE-AMGEN-DEUSP2024087165

PATIENT
  Age: 48 Year
  Sex: Male

DRUGS (8)
  1. DARBEPOETIN ALFA [Suspect]
     Active Substance: DARBEPOETIN ALFA
     Indication: Renal failure
     Dosage: 50 MICROGRAM
     Route: 058
     Dates: start: 2001
  2. DARBEPOETIN ALFA [Suspect]
     Active Substance: DARBEPOETIN ALFA
     Dosage: 50 MICROGRAM
     Route: 042
  3. EPOETIN ALFA [Suspect]
     Active Substance: ERYTHROPOIETIN
     Indication: Renal failure
     Dosage: 3 X2000 INTERNATIONAL UNIT, QWK
     Route: 058
     Dates: start: 200008
  4. EPOETIN ALFA [Suspect]
     Active Substance: ERYTHROPOIETIN
     Dosage: 1 TO 3X2000 INTERNATIONAL UNIT, QWK
     Route: 058
  5. EPOETIN ALFA [Suspect]
     Active Substance: ERYTHROPOIETIN
     Dosage: UNK
     Route: 042
  6. EPOETIN ALFA [Suspect]
     Active Substance: ERYTHROPOIETIN
     Dosage: 3 X4000 INTERNATIONAL UNIT (FOR 2 WEEK)
     Route: 058
  7. EPOETIN BETA [Suspect]
     Active Substance: ERYTHROPOIETIN
     Indication: Renal failure
     Dosage: 4000 INTERNATIONAL UNIT
     Route: 058
     Dates: start: 200108
  8. EPOETIN BETA [Suspect]
     Active Substance: ERYTHROPOIETIN
     Dosage: 6000 INTERNATIONAL UNIT
     Route: 042
     Dates: start: 200108

REACTIONS (9)
  - Aplasia pure red cell [Recovering/Resolving]
  - Retroperitoneal haematoma [Unknown]
  - Lumbosacral plexus lesion [Unknown]
  - Injection site urticaria [Recovering/Resolving]
  - Injection site erythema [Recovered/Resolved]
  - Injection site hypersensitivity [Unknown]
  - Feeling hot [Unknown]
  - Drug specific antibody present [Unknown]
  - Injection site pain [Recovered/Resolved]

NARRATIVE: CASE EVENT DATE: 20010101
